FAERS Safety Report 16480563 (Version 2)
Quarter: 2019Q4

REPORT INFORMATION
  Report Type: Report from Study
  Country: US (occurrence: US)
  Receive Date: 20190626
  Receipt Date: 20191006
  Transmission Date: 20200122
  Serious: No
  Sender: FDA-Public Use
  Company Number: US-ALEXION PHARMACEUTICALS INC.-A201909654

PATIENT
  Sex: Female

DRUGS (1)
  1. SOLIRIS [Suspect]
     Active Substance: ECULIZUMAB
     Indication: MYASTHENIA GRAVIS
     Dosage: 900 MG, QW
     Route: 042
     Dates: start: 20190607

REACTIONS (3)
  - Headache [Unknown]
  - Arthralgia [Unknown]
  - Vomiting [Recovering/Resolving]
